FAERS Safety Report 6288921-9 (Version None)
Quarter: 2009Q3

REPORT INFORMATION
  Report Type: 
  Country: None (occurrence: None)
  Receive Date: 20090729
  Receipt Date: 20090727
  Transmission Date: 20100115
  Serious: Yes (Hospitalization)
  Sender: FDA-Public Use
  Company Number: US-B.I. PHARMACEUTICALS,INC./RIDGEFIELD-2009-BP-08813BP

PATIENT
  Age: 86 Year
  Sex: Female

DRUGS (5)
  1. FLOMAX [Suspect]
     Indication: URINARY RETENTION
     Dosage: 0.4 MG
     Route: 048
     Dates: start: 20090709, end: 20090725
  2. NEURONTIN [Concomitant]
     Indication: NEUROPATHY PERIPHERAL
  3. ATENOLOL [Concomitant]
     Indication: HYPERTENSION
  4. MULTI-VITAMIN [Concomitant]
  5. ASPIRIN [Concomitant]
     Indication: CARDIAC DISORDER

REACTIONS (1)
  - DIARRHOEA [None]
